FAERS Safety Report 7477838-X (Version None)
Quarter: 2011Q2

REPORT INFORMATION
  Report Type: 
  Country: None (occurrence: None)
  Receive Date: 20110513
  Receipt Date: 20110104
  Transmission Date: 20111010
  Serious: No
  Sender: FDA-Public Use
  Company Number: US-ABBOTT-11P-163-0695539-00

PATIENT
  Sex: Male
  Weight: 64.468 kg

DRUGS (4)
  1. CARDIZEM [Concomitant]
     Indication: ATRIAL FIBRILLATION
  2. GENGRAF [Suspect]
     Indication: LIVER TRANSPLANT
     Dosage: 50 MG TWICE DAILY
     Dates: start: 20100801
  3. CELEXA [Concomitant]
     Indication: ANXIETY
  4. SYNTHROID [Concomitant]
     Indication: THYROIDECTOMY

REACTIONS (3)
  - JAUNDICE [None]
  - DRUG LEVEL DECREASED [None]
  - WEIGHT DECREASED [None]
